FAERS Safety Report 4883843-X (Version None)
Quarter: 2006Q1

REPORT INFORMATION
  Report Type: 
  Country: None (occurrence: None)
  Receive Date: 20060112
  Receipt Date: 20051125
  Transmission Date: 20060701
  Serious: Yes (Other)
  Sender: FDA-Public Use
  Company Number: GBR-2005-0002003

PATIENT
  Age: 75 Year
  Sex: Male

DRUGS (2)
  1. OXYCONTIN [Suspect]
     Indication: PAIN
     Dosage: 10 MG, DAILY, ORAL
     Route: 048
  2. MORPHINE SULFATE [Suspect]
     Indication: PAIN
     Dosage: ORAL
     Route: 048

REACTIONS (4)
  - DIABETIC HYPERGLYCAEMIC COMA [None]
  - DIABETIC HYPEROSMOLAR COMA [None]
  - DRUG INEFFECTIVE [None]
  - HYPOGLYCAEMIA [None]
